FAERS Safety Report 9656386 (Version 3)
Quarter: 2014Q4

REPORT INFORMATION
  Report Type: Report from Study
  Country: RO (occurrence: RO)
  Receive Date: 20131030
  Receipt Date: 20141126
  Transmission Date: 20150529
  Serious: Yes (Hospitalization, Other)
  Sender: FDA-Public Use
  Company Number: RO-UCBSA-101645

PATIENT
  Age: 37 Year
  Sex: Female
  Weight: 49 kg

DRUGS (7)
  1. METHOTREXATE [Concomitant]
     Active Substance: METHOTREXATE
     Dosage: UNK
     Route: 058
  2. PIRAZINAMIDE [Concomitant]
     Indication: TUBERCULOSIS
     Dosage: 1280 MG, ONCE DAILY (QD)
     Dates: start: 20131020
  3. METHOTREXATE [Concomitant]
     Active Substance: METHOTREXATE
     Dosage: UNK
  4. METHOTREXATE [Concomitant]
     Active Substance: METHOTREXATE
     Dosage: FREQUENCY: QS
     Route: 058
  5. ISONIAZIDE [Concomitant]
     Active Substance: ISONIAZID
     Indication: TUBERCULOSIS
     Dosage: 300 MG, ONCE DAILY (QD)
     Dates: start: 20131020
  6. CERTOLIZUMAB PEGOL [Suspect]
     Active Substance: CERTOLIZUMAB PEGOL
     Indication: RHEUMATOID ARTHRITIS
     Dosage: UNK
     Dates: start: 20120803, end: 20131005
  7. ETHAMBUTOL [Concomitant]
     Active Substance: ETHAMBUTOL HYDROCHLORIDE
     Indication: TUBERCULOSIS
     Dosage: 800 MG, ONCE DAILY (QD)
     Dates: start: 20131020

REACTIONS (2)
  - Tuberculosis [Recovering/Resolving]
  - Cholestasis [Unknown]

NARRATIVE: CASE EVENT DATE: 20131001
